FAERS Safety Report 21915493 (Version 8)
Quarter: 2023Q4

REPORT INFORMATION
  Report Type: Report from Study
  Country: AR (occurrence: AR)
  Receive Date: 20230126
  Receipt Date: 20231115
  Transmission Date: 20240110
  Serious: Yes (Life-Threatening, Hospitalization, Other)
  Sender: FDA-Public Use
  Company Number: AR-002147023-NVSC2023AR016342

PATIENT
  Age: 39 Year
  Sex: Female

DRUGS (9)
  1. KISQALI [Suspect]
     Active Substance: RIBOCICLIB
     Indication: Breast cancer metastatic
     Dosage: 200 MG, TID
     Route: 048
     Dates: start: 20221229
  2. KISQALI [Suspect]
     Active Substance: RIBOCICLIB
     Dosage: 200 MG, QD
     Route: 048
  3. KISQALI [Suspect]
     Active Substance: RIBOCICLIB
     Dosage: 600 MG, QD (02 FEB YEAR UNKNOWN)
     Route: 065
  4. KISQALI [Suspect]
     Active Substance: RIBOCICLIB
     Dosage: 600 MG, QD (ONCE DAILY)
     Route: 065
  5. LETROZOLE [Concomitant]
     Active Substance: LETROZOLE
     Indication: Product used for unknown indication
     Dosage: UNK UNK, QD (1 OF 2.5 MG)
     Route: 065
  6. ZOLEDRONIC ACID [Concomitant]
     Active Substance: ZOLEDRONIC ACID
     Indication: Product used for unknown indication
     Dosage: UNK (02 FEB YEAR UNKNOWN)
     Route: 065
  7. ZOLEDRONIC ACID [Concomitant]
     Active Substance: ZOLEDRONIC ACID
     Dosage: 4 MG (ONCE EVERY 28 DAYS)
     Route: 065
  8. LEUPROLIDE [Concomitant]
     Active Substance: LEUPROLIDE
     Indication: Product used for unknown indication
     Dosage: UNK (02 FEB, AMPOULE)
     Route: 065
  9. LEUPROLIDE [Concomitant]
     Active Substance: LEUPROLIDE
     Dosage: 7.5 MG (ONCE EVERY 28 DAYS) (THROUGH VEINS)
     Route: 065

REACTIONS (16)
  - Cardiac disorder [Unknown]
  - Hypotension [Unknown]
  - Hypoxia [Unknown]
  - Pericardial effusion [Unknown]
  - Fluid retention [Unknown]
  - Skin exfoliation [Unknown]
  - Hepatic enzyme increased [Unknown]
  - Loss of consciousness [Unknown]
  - Hepatic neoplasm [Unknown]
  - Vein collapse [Unknown]
  - Memory impairment [Unknown]
  - Anaemia [Unknown]
  - Anxiety [Unknown]
  - Breast neoplasm [Unknown]
  - Malaise [Unknown]
  - Inappropriate schedule of product administration [Unknown]

NARRATIVE: CASE EVENT DATE: 20221229
